FAERS Safety Report 20862738 (Version 1)
Quarter: 2022Q2

REPORT INFORMATION
  Report Type: Spontaneous
  Country: US (occurrence: None)
  Receive Date: 20220522
  Receipt Date: 20220522
  Transmission Date: 20220720
  Serious: Yes (Other)
  Sender: FDA-Public Use
  Company Number: None

PATIENT
  Age: 41 Year
  Sex: Female
  Weight: 52.65 kg

DRUGS (1)
  1. BOTOX [Suspect]
     Active Substance: ONABOTULINUMTOXINA
     Indication: Migraine

REACTIONS (4)
  - Injection site urticaria [None]
  - Injection site swelling [None]
  - Swelling [None]
  - Fear [None]

NARRATIVE: CASE EVENT DATE: 20220506
